FAERS Safety Report 7465029-8 (Version None)
Quarter: 2011Q2

REPORT INFORMATION
  Report Type: 
  Country: None (occurrence: None)
  Receive Date: 20110509
  Receipt Date: 20110427
  Transmission Date: 20111010
  Serious: Yes (Hospitalization)
  Sender: FDA-Public Use
  Company Number: NL-TEVA-280461ISR

PATIENT
  Sex: Female

DRUGS (7)
  1. FUROSEMIDE [Concomitant]
     Dosage: 80 MILLIGRAM;
  2. DOXYCYCLINE [Suspect]
     Dosage: 100 MILLIGRAM;
     Dates: start: 20110221, end: 20110221
  3. CLOBAZAM [Concomitant]
  4. OMEPRAZOLE [Concomitant]
  5. BUDESONIDE [Concomitant]
     Dosage: 800 MICROGRAM;
  6. POTASSIUM CHLORIDE [Concomitant]
     Dosage: 1200 MILLIGRAM;
  7. SPIRONOLACTONE [Concomitant]
     Dosage: 25 MILLIGRAM;

REACTIONS (1)
  - PULMONARY OEDEMA [None]
